FAERS Safety Report 16125521 (Version 1)
Quarter: 2019Q1

REPORT INFORMATION
  Report Type: Spontaneous
  Country: US (occurrence: US)
  Receive Date: 20190328
  Receipt Date: 20190328
  Transmission Date: 20190418
  Serious: No
  Sender: FDA-Public Use
  Company Number: US-LUPIN PHARMACEUTICALS INC.-2019-01103

PATIENT
  Age: 75 Year
  Sex: Female
  Weight: 68.03 kg

DRUGS (1)
  1. MOXIFLOXACIN HYDROCHLORIDE OPHTHALMIC SOLUTION USP, 0.5% [Suspect]
     Active Substance: MOXIFLOXACIN HYDROCHLORIDE
     Indication: GLAUCOMA SURGERY
     Dosage: 5 MILLILITER, QID
     Route: 047
     Dates: start: 20190125, end: 20190205

REACTIONS (3)
  - Vision blurred [Not Recovered/Not Resolved]
  - Eye pain [Recovered/Resolved]
  - Foreign body in eye [Recovered/Resolved]

NARRATIVE: CASE EVENT DATE: 20190202
